FAERS Safety Report 13361224 (Version 1)
Quarter: 2017Q1

REPORT INFORMATION
  Report Type: Spontaneous
  Country: GB (occurrence: GB)
  Receive Date: 20170322
  Receipt Date: 20170322
  Transmission Date: 20170429
  Serious: Yes (Other)
  Sender: FDA-Public Use
  Company Number: PHHY2017GB037385

PATIENT
  Age: 9 Month
  Sex: Male
  Weight: 9 kg

DRUGS (1)
  1. PENICILLIN V POTASSIUM. [Suspect]
     Active Substance: PENICILLIN V POTASSIUM
     Indication: TONSILLITIS
     Dosage: 2.5 ML, QID (FOR 10 DAYS)
     Route: 048
     Dates: start: 20170221, end: 20170223

REACTIONS (3)
  - Insomnia [Recovering/Resolving]
  - Psychomotor hyperactivity [Recovering/Resolving]
  - Rash [Not Recovered/Not Resolved]

NARRATIVE: CASE EVENT DATE: 20170222
